FAERS Safety Report 9727204 (Version 2)
Quarter: 2020Q3

REPORT INFORMATION
  Report Type: Spontaneous
  Country: NL (occurrence: NL)
  Receive Date: 20131203
  Receipt Date: 20131209
  Transmission Date: 20201105
  Serious: Yes (Other)
  Sender: FDA-Public Use
  Company Number: NL-TEVA-446118ISR

PATIENT
  Age: 6 Decade
  Sex: Female

DRUGS (4)
  1. IBANDRONIC ACID. [Suspect]
     Active Substance: IBANDRONIC ACID
     Route: 065
  2. LETROZOLE. [Suspect]
     Active Substance: LETROZOLE
     Route: 065
  3. ALENDRONIC ACID [Suspect]
     Active Substance: ALENDRONIC ACID
     Dosage: ONCE A WEEK
     Route: 065
  4. CALCIUM, COLECALCIFEROL [Concomitant]
     Route: 065

REACTIONS (5)
  - Gait disturbance [Unknown]
  - Headache [Unknown]
  - Vision blurred [Unknown]
  - Hyperhidrosis [Unknown]
  - Flushing [Unknown]
